FAERS Safety Report 9632952 (Version 2)
Quarter: 2013Q4

REPORT INFORMATION
  Report Type: Report from Study
  Country: US (occurrence: US)
  Receive Date: 20131018
  Receipt Date: 20131028
  Transmission Date: 20140711
  Serious: Yes (Hospitalization, Other)
  Sender: FDA-Public Use
  Company Number: US-ABBVIE-13P-163-1156577-00

PATIENT
  Sex: Female
  Weight: 82 kg

DRUGS (7)
  1. HUMIRA [Suspect]
     Indication: CROHN^S DISEASE
     Dates: start: 2008
  2. HUMIRA [Suspect]
     Route: 058
     Dates: start: 2013
  3. AZATHIOPRINE [Concomitant]
     Indication: CROHN^S DISEASE
  4. LOMOTIL [Concomitant]
     Indication: PRODUCT USED FOR UNKNOWN INDICATION
  5. FENTANYL [Concomitant]
     Indication: PAIN
     Dosage: ON AND OFF
  6. OXYCODONE [Concomitant]
     Indication: ABDOMINAL PAIN
     Dosage: ON AND OFF
  7. TRAZADONE [Concomitant]
     Indication: PRODUCT USED FOR UNKNOWN INDICATION

REACTIONS (10)
  - Short-bowel syndrome [Unknown]
  - Crohn^s disease [Recovered/Resolved]
  - Dehydration [Unknown]
  - Incision site infection [Recovered/Resolved]
  - Crohn^s disease [Unknown]
  - Fatigue [Unknown]
  - Asthenia [Unknown]
  - Abdominal pain [Unknown]
  - Diarrhoea [Unknown]
  - Diarrhoea [Unknown]
